FAERS Safety Report 6013553-7 (Version None)
Quarter: 2008Q4

REPORT INFORMATION
  Report Type: 
  Country: None (occurrence: None)
  Receive Date: 20081219
  Receipt Date: 20081210
  Transmission Date: 20090506
  Serious: Yes (Death, Hospitalization)
  Sender: FDA-Public Use
  Company Number: GB-CELGENEUS-167-C5013-07070336

PATIENT
  Sex: Male
  Weight: 79 kg

DRUGS (14)
  1. REVLIMID [Suspect]
     Indication: MULTIPLE MYELOMA
     Route: 048
     Dates: start: 20070620, end: 20070702
  2. DEXAMETHASONE [Suspect]
     Indication: MULTIPLE MYELOMA
     Route: 065
     Dates: start: 20070620, end: 20070702
  3. PREDNISOLONE [Concomitant]
     Route: 065
  4. PREDNISOLONE [Concomitant]
     Route: 048
     Dates: end: 20070706
  5. ALLOPURINOL [Concomitant]
     Indication: DRUG USE FOR UNKNOWN INDICATION
     Route: 065
  6. FRUSEMIDE [Concomitant]
     Indication: DIURETIC THERAPY
     Dosage: 1/2
     Route: 065
  7. PENICILLIN V [Concomitant]
     Indication: ANTI-INFECTIVE THERAPY
     Route: 065
  8. ITRACONAZOLE [Concomitant]
     Route: 065
  9. ACYCLOVIR [Concomitant]
     Route: 065
  10. CIPROFLOXACIN HCL [Concomitant]
     Indication: INFECTION PROPHYLAXIS
     Route: 065
  11. METROCLOPRAMIDE [Concomitant]
     Indication: DRUG USE FOR UNKNOWN INDICATION
     Route: 065
  12. OMEPRAZOLE [Concomitant]
     Indication: GASTRITIS PROPHYLAXIS
     Route: 065
  13. QUININE SULPHATE [Concomitant]
     Route: 065
  14. ENOXAPARIN SODIUM [Concomitant]
     Dosage: 1 SUB CUT
     Route: 050

REACTIONS (3)
  - HEPATIC FAILURE [None]
  - PNEUMONIA [None]
  - RENAL IMPAIRMENT [None]
